FAERS Safety Report 24215763 (Version 1)
Quarter: 2024Q3

REPORT INFORMATION
  Report Type: Report from Study
  Country: EG (occurrence: EG)
  Receive Date: 20240816
  Receipt Date: 20240816
  Transmission Date: 20241017
  Serious: Yes (Hospitalization)
  Sender: NOVARTIS
  Company Number: EG-002147023-NVSC2024EG162902

PATIENT
  Age: 23 Year
  Sex: Female
  Weight: 61 kg

DRUGS (2)
  1. GLIVEC [Suspect]
     Active Substance: IMATINIB MESYLATE
     Indication: Chronic myeloid leukaemia
     Dosage: 400 MG FOR 5 DAYS
     Route: 048
     Dates: start: 20240713
  2. COBAL [Concomitant]
     Indication: Malnutrition
     Dosage: 1 DOSAGE FORM, QD
     Route: 048
     Dates: start: 20240722

REACTIONS (7)
  - Abdominal pain upper [Recovered/Resolved]
  - Inflammation [Recovered/Resolved]
  - Vomiting [Recovered/Resolved]
  - Nausea [Recovered/Resolved]
  - Bone pain [Recovering/Resolving]
  - Fatigue [Unknown]
  - White blood cell count increased [Not Recovered/Not Resolved]

NARRATIVE: CASE EVENT DATE: 20240713
